FAERS Safety Report 7164299-3 (Version None)
Quarter: 2010Q4

REPORT INFORMATION
  Report Type: 
  Country: None (occurrence: None)
  Receive Date: 20101215
  Receipt Date: 20101202
  Transmission Date: 20110411
  Serious: Yes (Other)
  Sender: FDA-Public Use
  Company Number: PHHY2010BR41469

PATIENT
  Sex: Female
  Weight: 85 kg

DRUGS (2)
  1. FORASEQ [Suspect]
     Indication: ASTHMA
     Dosage: 1 DF, BID
     Dates: start: 20100621
  2. DAPSONE [Concomitant]
     Indication: DIVERTICULITIS
     Dosage: 1 DF, QD
     Route: 048

REACTIONS (6)
  - ASTHENIA [None]
  - HEART RATE INCREASED [None]
  - LEUKAEMIA [None]
  - PALLOR [None]
  - PALPITATIONS [None]
  - TREMOR [None]
